FAERS Safety Report 4383134-X (Version None)
Quarter: 2004Q2

REPORT INFORMATION
  Report Type: 
  Country: None (occurrence: None)
  Receive Date: 20040623
  Receipt Date: 20040225
  Transmission Date: 20050107
  Serious: Yes (Other)
  Sender: FDA-Public Use
  Company Number: CA-BRISTOL-MYERS SQUIBB COMPANY-12517033

PATIENT
  Sex: Female

DRUGS (15)
  1. ATAZANAVIR [Suspect]
     Dosage: INTERRUPTED ON 10-FEB-2004 AND RESTARTED ON 18-FEB-2004.
     Route: 048
     Dates: start: 20040123
  2. ACYCLOVIR [Suspect]
  3. NEUPOGEN [Suspect]
     Route: 058
  4. SEPTRA DS [Suspect]
  5. CLINDAMYCIN [Suspect]
  6. DARAPRIM [Suspect]
  7. T-20 [Concomitant]
     Dosage: INTERRUPTED 10-FEB-2004, RESTARTED 27-FEB-2004
     Route: 058
     Dates: start: 20040123
  8. 3TC [Concomitant]
     Dosage: INTERRUPTED ON 10-FEB-2004 AND RESTARTED ON 18-FEB-2004.
     Dates: start: 20040109
  9. KALETRA [Concomitant]
     Dosage: INTERRUPTED ON 10-FEB-2004 AND RESTARTED ON 18-FEB-2004.
     Dates: start: 20021123
  10. COVERSYL [Concomitant]
  11. AVANDIA [Concomitant]
  12. LIPIDIL [Concomitant]
  13. WARFARIN SODIUM [Concomitant]
  14. FLUCONAZOLE [Concomitant]
  15. FOLINIC ACID [Concomitant]

REACTIONS (1)
  - THROMBOCYTOPENIA [None]
